FAERS Safety Report 4924973-3 (Version None)
Quarter: 2006Q1

REPORT INFORMATION
  Report Type: 
  Country: None (occurrence: None)
  Receive Date: 20060222
  Receipt Date: 20060206
  Transmission Date: 20060701
  Serious: Yes (Hospitalization)
  Sender: FDA-Public Use
  Company Number: 8014899

PATIENT
  Age: 9 Year
  Sex: Male
  Weight: 35 kg

DRUGS (4)
  1. KEPPRA [Suspect]
     Indication: EPILEPSY
     Dosage: 175 MG 2/D
  2. DEPAKINE /00228502/ [Concomitant]
  3. TRILEPTAL [Concomitant]
  4. TEGRETOL [Concomitant]

REACTIONS (1)
  - CONVULSION [None]
